FAERS Safety Report 12821742 (Version 1)
Quarter: 2016Q4

REPORT INFORMATION
  Report Type: Spontaneous
  Country: CA (occurrence: CA)
  Receive Date: 20161006
  Receipt Date: 20161006
  Transmission Date: 20170207
  Serious: Yes (Other)
  Sender: FDA-Public Use
  Company Number: PHHY2016CA135818

PATIENT
  Age: 36 Year
  Sex: Male

DRUGS (1)
  1. BISOPROLOL SANDOZ [Suspect]
     Active Substance: BISOPROLOL
     Indication: CARDIAC FIBRILLATION
     Dosage: 2.5 MG, QD
     Route: 048
     Dates: end: 2016

REACTIONS (3)
  - Condition aggravated [Unknown]
  - Cardiac fibrillation [Unknown]
  - Off label use [Unknown]
